FAERS Safety Report 7021586-7 (Version None)
Quarter: 2010Q4

REPORT INFORMATION
  Report Type: 
  Country: None (occurrence: None)
  Receive Date: 20100928
  Receipt Date: 20100914
  Transmission Date: 20110411
  Serious: Yes (Hospitalization)
  Sender: FDA-Public Use
  Company Number: A-NJ2010-39642

PATIENT
  Age: 53 Year
  Sex: Male

DRUGS (12)
  1. TRACLEER [Suspect]
     Indication: PULMONARY ARTERIAL HYPERTENSION
     Dosage: ORAL
     Route: 048
     Dates: start: 20100409, end: 20100831
  2. COUMADIN [Concomitant]
  3. SPIRIVA [Concomitant]
  4. VITAMIN E [Concomitant]
  5. MAGNESIUM [Concomitant]
  6. SERTRALINE HYDROCHLORIDE [Concomitant]
  7. SPIRONOLACTONE [Concomitant]
  8. BRETHINE [Concomitant]
  9. ADVAIR DISKUS 100/50 [Concomitant]
  10. DIGOXIN [Concomitant]
  11. VASOTEC [Concomitant]
  12. FOLIC ACID [Concomitant]

REACTIONS (6)
  - ACUTE RESPIRATORY FAILURE [None]
  - CHOLECYSTITIS ACUTE [None]
  - CHOLELITHIASIS [None]
  - CHRONIC OBSTRUCTIVE PULMONARY DISEASE [None]
  - CONDITION AGGRAVATED [None]
  - GALLBLADDER DISORDER [None]
